FAERS Safety Report 26127264 (Version 1)
Quarter: 2025Q4

REPORT INFORMATION
  Report Type: Spontaneous
  Country: EU (occurrence: EU)
  Receive Date: 20251205
  Receipt Date: 20251205
  Transmission Date: 20260117
  Serious: Yes (Disabling)
  Sender: NOVO NORDISK
  Company Number: EU-NOVOPROD-1572652

PATIENT
  Sex: Female
  Weight: 58 kg

DRUGS (2)
  1. TRESIBA [Suspect]
     Active Substance: INSULIN DEGLUDEC
     Indication: Product used for unknown indication
     Dosage: UNK(DOSAGE: 14)
  2. FIASP [Suspect]
     Active Substance: INSULIN ASPART
     Indication: Product used for unknown indication
     Dosage: UNK(1.5/KHW  1KHW 1KHW)

REACTIONS (5)
  - Headache [Unknown]
  - Malaise [Unknown]
  - Rash macular [Unknown]
  - Ill-defined disorder [Unknown]
  - Product quality issue [Unknown]
